FAERS Safety Report 5562523-1 (Version None)
Quarter: 2007Q4

REPORT INFORMATION
  Report Type: 
  Country: None (occurrence: None)
  Receive Date: 20071217
  Receipt Date: 20071126
  Transmission Date: 20080405
  Serious: Yes (Other)
  Sender: FDA-Public Use
  Company Number: GB-BAYER-GB-2007-042626

PATIENT

DRUGS (1)
  1. MAGNEVIST [Suspect]

REACTIONS (1)
  - NEPHROGENIC SYSTEMIC FIBROSIS [None]
